FAERS Safety Report 18179427 (Version 1)
Quarter: 2020Q3

REPORT INFORMATION
  Report Type: Spontaneous
  Country: US (occurrence: US)
  Receive Date: 20200821
  Receipt Date: 20200821
  Transmission Date: 20201103
  Serious: No
  Sender: FDA-Public Use
  Company Number: US-GW PHARMA-202008USGW02831

PATIENT

DRUGS (1)
  1. EPIDIOLEX [Suspect]
     Active Substance: CANNABIDIOL
     Indication: PRODUCT USED FOR UNKNOWN INDICATION
     Dosage: 20 MG/KG/DAY, 500 MILLIGRAM, BID
     Route: 048
     Dates: start: 20190201

REACTIONS (2)
  - Seizure [Unknown]
  - Urinary tract infection [Unknown]
